FAERS Safety Report 8826104 (Version 3)
Quarter: 2012Q4

REPORT INFORMATION
  Report Type: 
  Country: JP (occurrence: JP)
  Receive Date: 20121005
  Receipt Date: 20121123
  Transmission Date: 20130627
  Serious: Yes (Death, Hospitalization, Other)
  Sender: FDA-Public Use
  Company Number: PHHY2012JP086326

PATIENT
  Age: 70 Year
  Sex: Female

DRUGS (2)
  1. GLIVEC [Suspect]
     Indication: CHRONIC MYELOID LEUKAEMIA
     Dosage: UNK UKN, UNK
     Route: 048
  2. DASATINIB [Suspect]
     Route: 048

REACTIONS (9)
  - Shock [Fatal]
  - Renal failure acute [Fatal]
  - Ulcer haemorrhage [Fatal]
  - Chronic myeloid leukaemia transformation [Fatal]
  - Melaena [Fatal]
  - Chronic myeloid leukaemia [Unknown]
  - Malignant neoplasm progression [Unknown]
  - Gastrointestinal haemorrhage [Unknown]
  - Metastasis [Unknown]
